FAERS Safety Report 20747830 (Version 1)
Quarter: 2022Q2

REPORT INFORMATION
  Report Type: Spontaneous
  Country: US (occurrence: US)
  Receive Date: 20220425
  Receipt Date: 20220425
  Transmission Date: 20220721
  Serious: No
  Sender: FDA-Public Use
  Company Number: US-BEH-2022144483

PATIENT
  Sex: Male

DRUGS (1)
  1. HIZENTRA [Suspect]
     Active Substance: HUMAN IMMUNOGLOBULIN G
     Route: 065

REACTIONS (6)
  - Dizziness [Recovered/Resolved]
  - Incorrect drug administration rate [Recovered/Resolved]
  - Asthenia [Recovered/Resolved]
  - Incorrect drug administration rate [Recovered/Resolved]
  - No adverse event [Unknown]
  - Therapy interrupted [Unknown]
